FAERS Safety Report 7306829-4 (Version None)
Quarter: 2011Q1

REPORT INFORMATION
  Report Type: 
  Country: None (occurrence: None)
  Receive Date: 20110223
  Receipt Date: 20110208
  Transmission Date: 20110831
  Serious: Yes (Hospitalization, Other)
  Sender: FDA-Public Use
  Company Number: US-CELGENEUS-163-21880-11011362

PATIENT
  Sex: Female

DRUGS (5)
  1. THYROID MEDICATION [Concomitant]
     Indication: THYROID THERAPY
     Route: 048
  2. BLOOD PRESSURE MEDICATION [Concomitant]
     Indication: BLOOD PRESSURE
     Route: 065
  3. REVLIMID [Suspect]
     Indication: MULTIPLE MYELOMA
     Route: 048
     Dates: start: 20101101, end: 20101101
  4. WATER PILLS [Concomitant]
     Indication: DIURETIC THERAPY
     Route: 048
  5. VELCADE [Concomitant]
     Route: 065

REACTIONS (4)
  - PAIN IN EXTREMITY [None]
  - CELLULITIS [None]
  - CONSTIPATION [None]
  - OEDEMA PERIPHERAL [None]
